FAERS Safety Report 6246813-5 (Version None)
Quarter: 2009Q2

REPORT INFORMATION
  Report Type: 
  Country: None (occurrence: None)
  Receive Date: 20090626
  Receipt Date: 20090616
  Transmission Date: 20091009
  Serious: Yes (Other)
  Sender: FDA-Public Use
  Company Number: GB-PFIZER INC-2009228076

PATIENT

DRUGS (1)
  1. PROVERA [Suspect]
     Dosage: 200 MG, 1X/DAY

REACTIONS (1)
  - GASTROINTESTINAL TUBE INSERTION [None]
